FAERS Safety Report 4820492-3 (Version None)
Quarter: 2005Q4

REPORT INFORMATION
  Report Type: 
  Country: None (occurrence: None)
  Receive Date: 20051014
  Receipt Date: 20050909
  Transmission Date: 20060501
  Serious: No
  Sender: FDA-Public Use
  Company Number: 2005SP002734

PATIENT
  Age: 67 Year
  Sex: Female
  Weight: 63.5036 kg

DRUGS (1)
  1. LUNESTA [Suspect]
     Dosage: 1.5 MG; HS. ORAL
     Route: 048
     Dates: start: 20050908

REACTIONS (1)
  - DYSPNOEA [None]
